FAERS Safety Report 6809009-1 (Version None)
Quarter: 2010Q2

REPORT INFORMATION
  Report Type: 
  Country: None (occurrence: None)
  Receive Date: 20100630
  Receipt Date: 20091201
  Transmission Date: 20101027
  Serious: No
  Sender: FDA-Public Use
  Company Number: US-PFIZER INC-2009207039

PATIENT
  Sex: Female

DRUGS (5)
  1. TIKOSYN [Interacting]
  2. LIBRAX [Interacting]
  3. PROTONIX [Interacting]
  4. PROPAFENONE [Suspect]
  5. TAMBOCOR [Suspect]

REACTIONS (3)
  - ABDOMINAL DISCOMFORT [None]
  - DRUG INEFFECTIVE [None]
  - DRUG INTERACTION [None]
